FAERS Safety Report 5927111-3 (Version None)
Quarter: 2008Q4

REPORT INFORMATION
  Report Type: 
  Country: None (occurrence: None)
  Receive Date: 20081022
  Receipt Date: 20081017
  Transmission Date: 20090506
  Serious: Yes (Other)
  Sender: FDA-Public Use
  Company Number: ES-ROXANE LABORATORIES, INC.-2008-RO-00136RO

PATIENT
  Age: 64 Year
  Sex: Male

DRUGS (2)
  1. FUROSEMIDE [Suspect]
     Dates: start: 20060901
  2. TORSEMIDE [Suspect]
     Dates: start: 20060501, end: 20060901

REACTIONS (2)
  - DRUG INTERACTION [None]
  - PSEUDOPORPHYRIA [None]
